FAERS Safety Report 4771203-1 (Version None)
Quarter: 2005Q3

REPORT INFORMATION
  Report Type: 
  Country: None (occurrence: None)
  Receive Date: 20050912
  Receipt Date: 20050720
  Transmission Date: 20060218
  Serious: Yes (Life-Threatening, Hospitalization)
  Sender: FDA-Public Use
  Company Number: 2004-01004

PATIENT
  Age: 56 Year
  Sex: Male
  Weight: 84.1 kg

DRUGS (8)
  1. VELCADE [Suspect]
     Indication: MULTIPLE MYELOMA
  2. PROCRIT [Suspect]
     Indication: ANAEMIA OF MALIGNANT DISEASE
     Dosage: 400000.00 IU, 1/WEEK, SUBCUTANEOUS
     Route: 058
  3. DOXORUBICIN HCL [Suspect]
     Indication: MULTIPLE MYELOMA
  4. CYCLOPHOSPHAMIDE [Suspect]
     Indication: MULTIPLE MYELOMA
  5. EOPOTOSIDE (ETOPOSIDE) [Suspect]
     Indication: MULTIPLE MYELOMA
  6. DEXAMETHASONE [Suspect]
     Indication: MULTIPLE MYELOMA
  7. CISPLATIN [Suspect]
     Indication: MULTIPLE MYELOMA
  8. THALIDOMIDE(THALIDOMIDE) [Suspect]

REACTIONS (1)
  - FEBRILE NEUTROPENIA [None]
